FAERS Safety Report 13415664 (Version 1)
Quarter: 2017Q2

REPORT INFORMATION
  Report Type: Spontaneous
  Country: GB (occurrence: GB)
  Receive Date: 20170406
  Receipt Date: 20170406
  Transmission Date: 20170830
  Serious: Yes (Hospitalization, Other)
  Sender: FDA-Public Use
  Company Number: GB-ABBVIE-17P-167-1934169-00

PATIENT
  Age: 56 Year
  Sex: Female

DRUGS (6)
  1. EPILIM [Suspect]
     Active Substance: VALPROATE SODIUM
     Indication: PRODUCT USED FOR UNKNOWN INDICATION
     Route: 065
  2. KEPPRA [Concomitant]
     Active Substance: LEVETIRACETAM
     Indication: PRODUCT USED FOR UNKNOWN INDICATION
  3. LAMOTRIGINE. [Concomitant]
     Active Substance: LAMOTRIGINE
     Indication: PRODUCT USED FOR UNKNOWN INDICATION
  4. TEGRETOL [Suspect]
     Active Substance: CARBAMAZEPINE
     Route: 048
     Dates: end: 2005
  5. GABAPENTIN. [Concomitant]
     Active Substance: GABAPENTIN
     Indication: PRODUCT USED FOR UNKNOWN INDICATION
  6. TEGRETOL [Suspect]
     Active Substance: CARBAMAZEPINE
     Indication: EPILEPSY
     Route: 048
     Dates: start: 1990

REACTIONS (15)
  - Decreased appetite [Unknown]
  - Confusional state [Unknown]
  - Mania [Unknown]
  - Osteoporosis [Unknown]
  - Dizziness [Unknown]
  - Seizure [Unknown]
  - Overdose [Unknown]
  - Suicide attempt [Unknown]
  - Disorganised speech [Unknown]
  - Speech disorder [Unknown]
  - Ocular icterus [Not Recovered/Not Resolved]
  - Renal haemorrhage [Unknown]
  - Depression [Unknown]
  - Dry mouth [Unknown]
  - Personality disorder [Unknown]
